FAERS Safety Report 6614073-9 (Version None)
Quarter: 2010Q1

REPORT INFORMATION
  Report Type: 
  Country: None (occurrence: None)
  Receive Date: 20100225
  Receipt Date: 20090203
  Transmission Date: 20100710
  Serious: Yes (Hospitalization)
  Sender: FDA-Public Use
  Company Number: 581440

PATIENT
  Age: 19 Year
  Sex: Female
  Weight: 45.4 kg

DRUGS (3)
  1. ACCUTANE [Suspect]
     Indication: ACNE
     Dosage: 20 MG 1 PER DAY
     Dates: start: 20021018, end: 20030201
  2. AMNESTEEM [Suspect]
     Indication: ACNE
     Dates: start: 20030301, end: 20030426
  3. YASMIN [Concomitant]

REACTIONS (6)
  - COLITIS [None]
  - CROHN'S DISEASE [None]
  - DEPRESSION [None]
  - INFLAMMATORY BOWEL DISEASE [None]
  - LIP DRY [None]
  - PROCTITIS [None]
